FAERS Safety Report 13458047 (Version 7)
Quarter: 2020Q1

REPORT INFORMATION
  Report Type: Spontaneous
  Country: FR (occurrence: FR)
  Receive Date: 20170419
  Receipt Date: 20200203
  Transmission Date: 20200409
  Serious: Yes (Death, Other)
  Sender: FDA-Public Use
  Company Number: FR-ROCHE-1918838

PATIENT
  Age: 0 Day
  Sex: Male
  Weight: .45 kg

DRUGS (8)
  1. ORACILLINE [PHENOXYMETHYLPENICILLIN] [Suspect]
     Active Substance: PENICILLIN V
     Indication: PRODUCT USED FOR UNKNOWN INDICATION
     Route: 064
  2. CORTANCYL [Suspect]
     Active Substance: PREDNISONE
     Route: 064
     Dates: start: 201701
  3. KARDEGIC [Suspect]
     Active Substance: ASPIRIN DL-LYSINE
     Indication: PRODUCT USED FOR UNKNOWN INDICATION
     Route: 064
  4. SPECIAFOLDINE [Suspect]
     Active Substance: FOLIC ACID
     Indication: PRODUCT USED FOR UNKNOWN INDICATION
     Route: 064
  5. MABTHERA [Suspect]
     Active Substance: RITUXIMAB
     Indication: PRODUCT USED FOR UNKNOWN INDICATION
     Route: 064
  6. PANTOPRAZOLE [Suspect]
     Active Substance: PANTOPRAZOLE
     Indication: PRODUCT USED FOR UNKNOWN INDICATION
     Route: 064
  7. CORTANCYL [Suspect]
     Active Substance: PREDNISONE
     Indication: PRODUCT USED FOR UNKNOWN INDICATION
     Route: 064
  8. CORTANCYL [Suspect]
     Active Substance: PREDNISONE
     Route: 064
     Dates: start: 20161118

REACTIONS (5)
  - Foetal growth restriction [Fatal]
  - Foetal exposure during pregnancy [Unknown]
  - Multiple organ dysfunction syndrome [Fatal]
  - Low birth weight baby [Unknown]
  - Premature baby [Fatal]

NARRATIVE: CASE EVENT DATE: 20161220
